FAERS Safety Report 20310352 (Version 1)
Quarter: 2022Q1

REPORT INFORMATION
  Report Type: Spontaneous
  Country: FR (occurrence: FR)
  Receive Date: 20220107
  Receipt Date: 20220107
  Transmission Date: 20220424
  Serious: Yes (Other)
  Sender: FDA-Public Use
  Company Number: FR-BAYER-2022A001378

PATIENT
  Sex: Male

DRUGS (2)
  1. RIVAROXABAN [Interacting]
     Active Substance: RIVAROXABAN
     Indication: Product used for unknown indication
     Dosage: UNK
     Route: 065
  2. ERLEADA [Suspect]
     Active Substance: APALUTAMIDE

REACTIONS (3)
  - Transient ischaemic attack [Unknown]
  - Drug interaction [Unknown]
  - Drug ineffective [Unknown]
